FAERS Safety Report 7540656-8 (Version None)
Quarter: 2011Q2

REPORT INFORMATION
  Report Type: 
  Country: None (occurrence: None)
  Receive Date: 20110610
  Receipt Date: 20110607
  Transmission Date: 20111010
  Serious: Yes (Other)
  Sender: FDA-Public Use
  Company Number: GXKR2011DE01939

PATIENT
  Age: 38 Year
  Sex: Female
  Weight: 70 kg

DRUGS (5)
  1. FLUOXETINE HCL [Suspect]
     Indication: DEPRESSION
     Dosage: 40 MG/DAY (UNTIL GW 10.6)
     Route: 048
     Dates: start: 20090328, end: 20090612
  2. OMEPRAZOLE [Suspect]
     Indication: GASTRITIS
     Dosage: 40 MG/DAY (GW 7 TO 10.6)
     Route: 048
  3. NOVALGIN                                /SCH/ [Suspect]
     Indication: PAIN
     Dosage: 2250 MG, QD (UNTIL GW 10)
     Route: 048
  4. LYRICA [Suspect]
     Indication: TRIGEMINAL NEURALGIA
     Dosage: 550 MG/DAY (UNTIL GW 10.6)
     Route: 048
     Dates: start: 20090328, end: 20090612
  5. FEMIBION [Concomitant]
     Indication: PROPHYLAXIS OF NEURAL TUBE DEFECT
     Dosage: 0.4 MG/DAY
     Route: 048

REACTIONS (2)
  - GESTATIONAL DIABETES [None]
  - DRUG EXPOSURE DURING PREGNANCY [None]
